FAERS Safety Report 6017029-2 (Version None)
Quarter: 2008Q4

REPORT INFORMATION
  Report Type: 
  Country: None (occurrence: None)
  Receive Date: 20081223
  Receipt Date: 20081111
  Transmission Date: 20090506
  Serious: Yes (Hospitalization, Other)
  Sender: FDA-Public Use
  Company Number: DE-BAYER-200830653GPV

PATIENT
  Age: 42 Year
  Sex: Female

DRUGS (1)
  1. INTERFERON BETA-1B [Suspect]
     Indication: MULTIPLE SCLEROSIS RELAPSE
     Route: 065
     Dates: start: 20050901

REACTIONS (4)
  - AUTOIMMUNE HEPATITIS [None]
  - JAUNDICE [None]
  - PRURITUS [None]
  - TRANSAMINASES INCREASED [None]
